FAERS Safety Report 6309576-0 (Version None)
Quarter: 2009Q3

REPORT INFORMATION
  Report Type: 
  Country: None (occurrence: None)
  Receive Date: 20090814
  Receipt Date: 20090804
  Transmission Date: 20100115
  Serious: Yes (Hospitalization)
  Sender: FDA-Public Use
  Company Number: PHHY2009FR32851

PATIENT
  Sex: Male

DRUGS (7)
  1. STALEVO 100 [Suspect]
     Indication: PARKINSON'S DISEASE
     Dosage: UNK
     Dates: start: 20090415, end: 20090515
  2. NISIS [Concomitant]
     Indication: HYPERTENSION
     Dosage: UNK
  3. IKOREL [Concomitant]
     Indication: ANGINA PECTORIS
     Dosage: UNK
  4. DEPAKENE [Concomitant]
     Indication: EPILEPSY
     Dosage: UNK
  5. GALANTAMINE HYDROBROMIDE [Concomitant]
     Indication: SENILE DEMENTIA
  6. ZYLORIC [Concomitant]
     Indication: HYPERURICAEMIA
     Dosage: UNK
     Dates: start: 20050101
  7. LASIX [Concomitant]
     Indication: HYPERTENSION
     Dosage: UNK

REACTIONS (4)
  - ERYTHEMA [None]
  - PRURITUS [None]
  - PYREXIA [None]
  - RASH MACULO-PAPULAR [None]
